FAERS Safety Report 18130608 (Version 1)
Quarter: 2020Q3

REPORT INFORMATION
  Report Type: Spontaneous
  Country: US (occurrence: US)
  Receive Date: 20200810
  Receipt Date: 20200810
  Transmission Date: 20201103
  Serious: Yes (Death, Other)
  Sender: FDA-Public Use
  Company Number: US-PURDUE-USA-2020-0160562

PATIENT
  Age: 45 Year
  Sex: Male

DRUGS (1)
  1. OXYCONTIN [Suspect]
     Active Substance: OXYCODONE HYDROCHLORIDE
     Indication: BACK INJURY
     Dosage: UNK
     Route: 048

REACTIONS (7)
  - Dependence [Unknown]
  - Toxicity to various agents [Fatal]
  - Tooth loss [Unknown]
  - Jaundice [Unknown]
  - Dyspnoea [Unknown]
  - Product prescribing issue [Unknown]
  - Overdose [Unknown]

NARRATIVE: CASE EVENT DATE: 20060807
